FAERS Safety Report 4756096-0 (Version None)
Quarter: 2005Q3

REPORT INFORMATION
  Report Type: 
  Country: None (occurrence: None)
  Receive Date: 20050830
  Receipt Date: 20050713
  Transmission Date: 20060218
  Serious: Yes (Other)
  Sender: FDA-Public Use
  Company Number: PHBS2005CA10211

PATIENT
  Age: 32 Year
  Sex: Female
  Weight: 66 kg

DRUGS (1)
  1. PAMIDRONATE DISODIUM [Suspect]
     Indication: CERVIX CARCINOMA STAGE IV
     Dosage: 90 MG/D
     Dates: start: 20050706, end: 20050706

REACTIONS (2)
  - HYPERCALCAEMIA [None]
  - HYPOALBUMINAEMIA [None]
